FAERS Safety Report 5268376-3 (Version None)
Quarter: 2007Q1

REPORT INFORMATION
  Report Type: 
  Country: None (occurrence: None)
  Receive Date: 20070314
  Receipt Date: 20070314
  Transmission Date: 20070707
  Serious: Yes (Hospitalization)
  Sender: FDA-Public Use
  Company Number: None

PATIENT
  Sex: Male
  Weight: 60.8 kg

DRUGS (1)
  1. SULFAMETHOXAZOLE/TRIMETHOPRIM 800MG/160MG [Suspect]
     Indication: URINARY TRACT INFECTION STAPHYLOCOCCAL
     Dosage: 800MG/160MG QDAILY PO
     Route: 048
     Dates: start: 20061225, end: 20070104

REACTIONS (5)
  - ASTHENIA [None]
  - HYPERKALAEMIA [None]
  - NEPHRITIS INTERSTITIAL [None]
  - ORAL INTAKE REDUCED [None]
  - RENAL FAILURE ACUTE [None]
